FAERS Safety Report 12253300 (Version 2)
Quarter: 2016Q4

REPORT INFORMATION
  Report Type: Spontaneous
  Country: US (occurrence: US)
  Receive Date: 20160411
  Receipt Date: 20161215
  Transmission Date: 20170207
  Serious: Yes (Other)
  Sender: FDA-Public Use
  Company Number: US-ELI_LILLY_AND_COMPANY-US201604000375

PATIENT
  Sex: Female
  Weight: 93.88 kg

DRUGS (8)
  1. CYMBALTA [Suspect]
     Active Substance: DULOXETINE HYDROCHLORIDE
     Dosage: 30 MG, BID
     Route: 065
  2. CYMBALTA [Suspect]
     Active Substance: DULOXETINE HYDROCHLORIDE
     Dosage: 20 MG, QD
     Dates: start: 20140610
  3. CYMBALTA [Suspect]
     Active Substance: DULOXETINE HYDROCHLORIDE
     Indication: PAIN
     Dosage: UNK, UNKNOWN
     Route: 065
  4. CYMBALTA [Suspect]
     Active Substance: DULOXETINE HYDROCHLORIDE
     Dosage: 30 MG, QOD
     Route: 065
  5. CYMBALTA [Suspect]
     Active Substance: DULOXETINE HYDROCHLORIDE
     Dosage: 20 MG, OTHER
     Route: 065
  6. EFFEXOR [Concomitant]
     Active Substance: VENLAFAXINE HYDROCHLORIDE
     Indication: PRODUCT USED FOR UNKNOWN INDICATION
     Dosage: 150 MG, QD
     Route: 065
  7. CYMBALTA [Suspect]
     Active Substance: DULOXETINE HYDROCHLORIDE
     Indication: DEPRESSION
     Dosage: 30 MG, QD
     Dates: start: 201403
  8. WELLBUTRIN [Concomitant]
     Active Substance: BUPROPION HYDROCHLORIDE
     Indication: PRODUCT USED FOR UNKNOWN INDICATION
     Dosage: UNK, UNKNOWN
     Route: 048

REACTIONS (20)
  - Dysphoria [Unknown]
  - Suicidal ideation [Unknown]
  - Anger [Unknown]
  - Anxiety [Unknown]
  - Paraesthesia [Unknown]
  - Agitation [Unknown]
  - Vision blurred [Unknown]
  - Nightmare [Unknown]
  - Seizure [Unknown]
  - Hallucination [Unknown]
  - Affect lability [Unknown]
  - Loss of consciousness [Unknown]
  - Paranoia [Unknown]
  - Tremor [Unknown]
  - Sensory disturbance [Unknown]
  - Lethargy [Unknown]
  - Irritability [Unknown]
  - Mood altered [Unknown]
  - Suicide attempt [Unknown]
  - Drug withdrawal syndrome [Unknown]
